FAERS Safety Report 20847489 (Version 2)
Quarter: 2022Q2

REPORT INFORMATION
  Report Type: Report from Study
  Country: US (occurrence: None)
  Receive Date: 20220519
  Receipt Date: 20220526
  Transmission Date: 20220720
  Serious: Yes (Hospitalization)
  Sender: FDA-Public Use
  Company Number: US-ROCHE-3094119

PATIENT
  Age: 55 Year
  Sex: Female
  Weight: 55.91 kg

DRUGS (3)
  1. BEVACIZUMAB [Suspect]
     Active Substance: BEVACIZUMAB
     Indication: Ovarian epithelial cancer
     Dosage: 15 MG/KG IV OVER30- 90 MINUTES ON DAY 1OF CYCLES 2?LAST ADMINISTRATION DATE: 14/OCT/2011?LAST ADMINI
     Route: 042
     Dates: start: 20110701
  2. PACLITAXEL [Suspect]
     Active Substance: PACLITAXEL
     Indication: Ovarian epithelial cancer
     Dosage: 80 MG/M2 IV OVER 1HR ON DAYS1,8 + 15 (CYCLES1- 6)
     Route: 042
     Dates: start: 20110701
  3. CARBOPLATIN [Suspect]
     Active Substance: CARBOPLATIN
     Indication: Ovarian epithelial cancer
     Dosage: AUC= 6 IV ON DAY1(CYCLES1-6)
     Route: 042
     Dates: start: 20110701

REACTIONS (9)
  - Abdominal pain [Recovered/Resolved]
  - Device related infection [Recovered/Resolved]
  - Constipation [Recovered/Resolved]
  - Dyspnoea [Recovered/Resolved]
  - Hypokalaemia [Recovered/Resolved]
  - International normalised ratio increased [Recovered/Resolved]
  - Nausea [Recovered/Resolved]
  - Benign neoplasm [Recovered/Resolved]
  - Vomiting [Recovered/Resolved]

NARRATIVE: CASE EVENT DATE: 20111028
